FAERS Safety Report 4926743-9 (Version None)
Quarter: 2006Q1

REPORT INFORMATION
  Report Type: 
  Country: None (occurrence: None)
  Receive Date: 20060228
  Receipt Date: 20050608
  Transmission Date: 20060701
  Serious: No
  Sender: FDA-Public Use
  Company Number: US-GLAXOSMITHKLINE-A0561819A

PATIENT
  Age: 31 Year
  Sex: Male

DRUGS (9)
  1. LAMICTAL [Suspect]
     Indication: EPILEPSY
     Dosage: 400MG TWICE PER DAY
     Route: 048
     Dates: start: 20040901
  2. NEURONTIN [Concomitant]
  3. ZITHROMAX [Concomitant]
  4. RHINOCORT SPRAY [Concomitant]
  5. ZYRTEC [Concomitant]
  6. PROTONIX [Concomitant]
  7. UNKNOWN MEDICATION [Concomitant]
     Route: 065
  8. KLONOPIN [Concomitant]
  9. HALDOL [Concomitant]

REACTIONS (32)
  - ABDOMINAL PAIN [None]
  - ACNE [None]
  - AMNESIA [None]
  - ANXIETY [None]
  - ARTHRALGIA [None]
  - ASTHENIA [None]
  - BRONCHITIS [None]
  - CONFUSIONAL STATE [None]
  - COUGH [None]
  - DECREASED APPETITE [None]
  - DIPLOPIA [None]
  - DIZZINESS [None]
  - DRUG TOXICITY [None]
  - FATIGUE [None]
  - HEADACHE [None]
  - IRRITABILITY [None]
  - MALAISE [None]
  - MUSCLE TIGHTNESS [None]
  - NASOPHARYNGITIS [None]
  - NAUSEA [None]
  - OVERDOSE [None]
  - PAIN [None]
  - PARAESTHESIA [None]
  - PHARYNGOLARYNGEAL PAIN [None]
  - POSTNASAL DRIP [None]
  - PRURITUS [None]
  - RASH [None]
  - SOMNOLENCE [None]
  - TREMOR [None]
  - VISION BLURRED [None]
  - VOMITING [None]
  - WEIGHT DECREASED [None]
